FAERS Safety Report 6616777-0 (Version None)
Quarter: 2010Q1

REPORT INFORMATION
  Report Type: 
  Country: None (occurrence: None)
  Receive Date: 20100305
  Receipt Date: 20091106
  Transmission Date: 20100710
  Serious: Yes (Hospitalization, Other)
  Sender: FDA-Public Use
  Company Number: GB-PFIZER INC-2009170809

PATIENT
  Age: 74 Year
  Sex: Male
  Weight: 66.1 kg

DRUGS (16)
  1. *ERLOTINIB [Suspect]
     Indication: NON-SMALL CELL LUNG CANCER METASTATIC
     Dosage: 150 MG, 1X/DAY
     Route: 048
     Dates: start: 20090128, end: 20090211
  2. BLINDED *NO SUBJECT DRUG [Suspect]
     Indication: NON-SMALL CELL LUNG CANCER
     Dosage: 37.5 MG, 1X/DAY
     Route: 048
     Dates: start: 20090128, end: 20090211
  3. BLINDED *PLACEBO [Suspect]
     Indication: NON-SMALL CELL LUNG CANCER
     Dosage: 37.5 MG, 1X/DAY
     Route: 048
     Dates: start: 20090128, end: 20090211
  4. BLINDED SUNITINIB MALATE [Suspect]
     Indication: NON-SMALL CELL LUNG CANCER
     Dosage: 37.5 MG, 1X/DAY
     Route: 048
     Dates: start: 20090128, end: 20090211
  5. OXYCODONE HCL [Concomitant]
     Indication: CANCER PAIN
  6. PARACETAMOL [Concomitant]
     Indication: CANCER PAIN
  7. OMEPRAZOLE [Concomitant]
     Indication: PROPHYLAXIS
  8. OXYCONTIN [Concomitant]
     Indication: CANCER PAIN
  9. CITALOPRAM [Concomitant]
     Indication: DEPRESSION
  10. LEVOMEPROMAZINE [Concomitant]
     Indication: SEDATION
  11. SERETIDE [Concomitant]
     Indication: ASTHMA
     Route: 045
  12. XALATAN [Concomitant]
     Indication: OCULAR HYPERTENSION
     Route: 061
  13. DOXAZOSIN [Concomitant]
     Indication: HYPERTENSION
  14. FINASTERIDE [Concomitant]
     Indication: BENIGN PROSTATIC HYPERPLASIA
  15. SIMVASTATIN [Concomitant]
     Indication: HYPERCHOLESTEROLAEMIA
  16. LOPERAMIDE [Concomitant]
     Indication: DIARRHOEA

REACTIONS (2)
  - HYPOMAGNESAEMIA [None]
  - RENAL FAILURE ACUTE [None]
